FAERS Safety Report 6677262-3 (Version None)
Quarter: 2010Q2

REPORT INFORMATION
  Report Type: 
  Country: None (occurrence: None)
  Receive Date: 20100402
  Receipt Date: 20090324
  Transmission Date: 20101027
  Serious: Yes (Hospitalization)
  Sender: FDA-Public Use
  Company Number: ENC200800201

PATIENT
  Age: 68 Year
  Sex: Female

DRUGS (13)
  1. ARGATROBAN [Suspect]
     Indication: HEPARIN-INDUCED THROMBOCYTOPENIA
     Dosage: 2 MCG/KG/MIN, INTRAVENOUS
     Route: 042
     Dates: start: 20081026, end: 20081028
  2. WARFARIN SODIUM [Suspect]
     Dosage: 5 MG, SINGLE, ORAL
     Route: 048
     Dates: start: 20081027, end: 20081027
  3. AVELOX [Concomitant]
  4. AMLODIPINE [Concomitant]
  5. CALCIUM ACETATE (CALCIUM ACETATE) [Concomitant]
  6. VANCOMYCIN [Concomitant]
  7. PERCOCET [Concomitant]
  8. MORPHINE [Concomitant]
  9. REVLIMID [Concomitant]
  10. PHOSLO [Concomitant]
  11. DEXAMETHASONE [Concomitant]
  12. FOLBEE (PYRIDOXINE, FOLIC ACID, CYANOCOBALAMIN) [Concomitant]
  13. NEPHROCAPS (FOLIC ACID, VITAMINS NOS) [Concomitant]

REACTIONS (1)
  - COAGULATION TIME PROLONGED [None]
